FAERS Safety Report 7301672-4 (Version None)
Quarter: 2011Q1

REPORT INFORMATION
  Report Type: 
  Country: None (occurrence: None)
  Receive Date: 20110218
  Receipt Date: 20110207
  Transmission Date: 20110831
  Serious: Yes (Hospitalization)
  Sender: FDA-Public Use
  Company Number: NL-MEDIMMUNE-MEDI-0012468

PATIENT
  Sex: Male
  Weight: 9.6 kg

DRUGS (3)
  1. SYNAGIS [Suspect]
     Route: 030
     Dates: start: 20100915, end: 20100915
  2. SYNAGIS [Suspect]
     Route: 030
     Dates: start: 20110203, end: 20110203
  3. SYNAGIS [Suspect]
     Route: 030
     Dates: start: 20110105, end: 20110105

REACTIONS (3)
  - COUGH [None]
  - NASOPHARYNGITIS [None]
  - SURGERY [None]
